FAERS Safety Report 8270111-1 (Version None)
Quarter: 2012Q2

REPORT INFORMATION
  Report Type: 
  Country: None (occurrence: None)
  Receive Date: 20120410
  Receipt Date: 20120403
  Transmission Date: 20120825
  Serious: Yes (Other)
  Sender: FDA-Public Use
  Company Number: PHHY2012FR029590

PATIENT
  Sex: Male

DRUGS (4)
  1. ZOLPIDEM TARTRATE [Concomitant]
  2. PAROXETINE HYDROCHLORIDE [Concomitant]
     Dosage: 200 MG, QD (MORNING)
  3. CLOZAPINE [Suspect]
     Indication: SCHIZOPHRENIA
     Dosage: 200 MG, TID
  4. TERCIAN [Concomitant]
     Dosage: 2 DF, (0.5 DF IN MORNING AND 0.5 DF IN EVENING)
     Route: 048

REACTIONS (1)
  - HODGKIN'S DISEASE STAGE IV [None]
